FAERS Safety Report 9340511 (Version 4)
Quarter: 2013Q3

REPORT INFORMATION
  Report Type: Report from Study
  Country: US (occurrence: US)
  Receive Date: 20130610
  Receipt Date: 20130718
  Transmission Date: 20140515
  Serious: Yes (Other)
  Sender: FDA-Public Use
  Company Number: US-PFIZER INC-2011077958

PATIENT
  Age: 73 Year
  Sex: Female
  Weight: 63.49 kg

DRUGS (5)
  1. CHANTIX [Suspect]
     Indication: SMOKING CESSATION THERAPY
     Dosage: 0.5 MG, UNK
     Dates: start: 20110325, end: 20110408
  2. CHANTIX [Suspect]
     Dosage: 1 MG, 2X/DAY
     Route: 048
     Dates: end: 2011
  3. FLUCONAZOLE [Suspect]
     Indication: FUNGAL INFECTION
     Dosage: 150 MG, SINGLE
     Dates: start: 2011, end: 2011
  4. PREDNISONE [Concomitant]
     Indication: ARTHRITIS
     Dosage: 5 MG, UNK
  5. TERBINAFINE [Concomitant]
     Dosage: UNK

REACTIONS (6)
  - Rash generalised [Not Recovered/Not Resolved]
  - Urticaria [Unknown]
  - Memory impairment [Unknown]
  - Insomnia [Not Recovered/Not Resolved]
  - Somnolence [Unknown]
  - Local swelling [Unknown]
